FAERS Safety Report 6573430-X (Version None)
Quarter: 2010Q1

REPORT INFORMATION
  Report Type: 
  Country: None (occurrence: None)
  Receive Date: 20100208
  Receipt Date: 20100127
  Transmission Date: 20100710
  Serious: Yes (Hospitalization)
  Sender: FDA-Public Use
  Company Number: US-JNJFOC-20100200334

PATIENT
  Sex: Male
  Weight: 81.65 kg

DRUGS (6)
  1. REMICADE [Suspect]
     Indication: CROHN'S DISEASE
     Dosage: 6 INFUSIONS PRIOR TO BASELINE
     Route: 042
  2. REMICADE [Suspect]
     Route: 042
  3. REMICADE [Suspect]
     Route: 042
  4. ANTIBIOTICS [Concomitant]
     Indication: CROHN'S DISEASE
  5. NARCOTIC ANALGESICS, NOS [Concomitant]
     Indication: CROHN'S DISEASE
  6. ANTIDEPRESSANTS [Concomitant]
     Indication: CROHN'S DISEASE

REACTIONS (2)
  - BACK PAIN [None]
  - HERPES ZOSTER [None]
